FAERS Safety Report 4949692-9 (Version None)
Quarter: 2006Q1

REPORT INFORMATION
  Report Type: 
  Country: None (occurrence: None)
  Receive Date: 20060315
  Receipt Date: 20060303
  Transmission Date: 20060701
  Serious: Yes (Death)
  Sender: FDA-Public Use
  Company Number: CLOF-10190

PATIENT
  Age: 47 Year
  Sex: Female
  Weight: 56 kg

DRUGS (14)
  1. CLOLAR [Suspect]
     Indication: ACUTE MYELOID LEUKAEMIA
     Dosage: 40 MG/M2 QD X 5 IV
     Route: 042
     Dates: start: 20060131, end: 20060201
  2. LEVAQUIN [Concomitant]
  3. AZTREONAM [Concomitant]
  4. CASPOFUNGIN [Concomitant]
  5. METRONIDAZOLE [Concomitant]
  6. VORICONAZOLE [Concomitant]
  7. VANCOMYCIN [Concomitant]
  8. AMBIEN [Concomitant]
  9. ATIVAN [Concomitant]
  10. COLACE [Concomitant]
  11. COMPAZINE [Concomitant]
  12. BENADRYL [Concomitant]
  13. TYLENOL [Concomitant]
  14. ZYPREXA [Concomitant]

REACTIONS (13)
  - ALANINE AMINOTRANSFERASE INCREASED [None]
  - ASPARTATE AMINOTRANSFERASE INCREASED [None]
  - BLOOD ALKALINE PHOSPHATASE INCREASED [None]
  - BLOOD BILIRUBIN INCREASED [None]
  - BLOOD LACTATE DEHYDROGENASE INCREASED [None]
  - CONDITION AGGRAVATED [None]
  - FLUID RETENTION [None]
  - HEART RATE INCREASED [None]
  - LUNG INFILTRATION [None]
  - PALMAR-PLANTAR ERYTHRODYSAESTHESIA SYNDROME [None]
  - PLATELET COUNT DECREASED [None]
  - RESPIRATORY DISTRESS [None]
  - THERAPY NON-RESPONDER [None]
